FAERS Safety Report 5521942-X (Version None)
Quarter: 2007Q4

REPORT INFORMATION
  Report Type: 
  Country: None (occurrence: None)
  Receive Date: 20071120
  Receipt Date: 20070205
  Transmission Date: 20080405
  Serious: No
  Sender: FDA-Public Use
  Company Number: US-BRISTOL-MYERS SQUIBB COMPANY-13668934

PATIENT
  Age: 54 Year
  Sex: Female
  Weight: 68 kg

DRUGS (5)
  1. AVALIDE [Suspect]
     Indication: HYPERTENSION
     Dosage: 150/12.5MG
     Dates: start: 20061201, end: 20070202
  2. CEPHALEXIN [Concomitant]
  3. PAMELOR [Concomitant]
  4. LIPITOR [Concomitant]
  5. SINGULAIR [Concomitant]

REACTIONS (2)
  - BLOOD PRESSURE INCREASED [None]
  - UPPER RESPIRATORY TRACT INFECTION [None]
